FAERS Safety Report 14747172 (Version 4)
Quarter: 2018Q2

REPORT INFORMATION
  Report Type: Spontaneous
  Country: AT (occurrence: AT)
  Receive Date: 20180411
  Receipt Date: 20180606
  Transmission Date: 20180711
  Serious: Yes (Other)
  Sender: FDA-Public Use
  Company Number: AT-GILEAD-2018-0331963

PATIENT
  Age: 69 Year
  Sex: Female
  Weight: 50 kg

DRUGS (10)
  1. SEROPRAM (CITALOPRAM HYDROCHLORIDE) [Concomitant]
     Active Substance: CITALOPRAM HYDROCHLORIDE
  2. VIREAD [Suspect]
     Active Substance: TENOFOVIR DISOPROXIL FUMARATE
     Indication: HIV INFECTION
     Dosage: UNK
     Route: 065
     Dates: start: 200511, end: 200603
  3. FOSAMPRENAVIR [Concomitant]
     Active Substance: FOSAMPRENAVIR
     Dosage: UNK
     Dates: start: 200604, end: 200605
  4. NEVIRAPINE. [Concomitant]
     Active Substance: NEVIRAPINE
     Dosage: UNK
     Dates: start: 200511, end: 200603
  5. RITONAVIR. [Concomitant]
     Active Substance: RITONAVIR
     Dosage: UNK
     Dates: start: 200604
  6. QUILONORM                          /00033703/ [Concomitant]
     Active Substance: LITHIUM ACETATE
  7. SAQUINAVIR [Concomitant]
     Active Substance: SAQUINAVIR
     Dosage: UNK
     Dates: start: 200605, end: 200707
  8. ABACAVIR. [Concomitant]
     Active Substance: ABACAVIR
     Dosage: UNK
     Dates: start: 200511, end: 200603
  9. EMTRIVA [Suspect]
     Active Substance: EMTRICITABINE
     Indication: HIV INFECTION
     Dosage: UNK
     Route: 065
     Dates: start: 200511, end: 200603
  10. TRUVADA [Suspect]
     Active Substance: EMTRICITABINE\TENOFOVIR DISOPROXIL FUMARATE
     Indication: HIV INFECTION
     Dosage: UNK
     Route: 065
     Dates: start: 200604, end: 200707

REACTIONS (10)
  - Depression [Unknown]
  - Type 2 diabetes mellitus [Unknown]
  - Hypercholesterolaemia [Unknown]
  - Cerebral artery occlusion [Unknown]
  - Osteochondrosis [Unknown]
  - Thrombophlebitis [Unknown]
  - Osteoporosis [Unknown]
  - Peripheral arterial occlusive disease [Unknown]
  - Lipodystrophy acquired [Unknown]
  - Osteoarthritis [Unknown]
